FAERS Safety Report 8176876-1 (Version None)
Quarter: 2012Q1

REPORT INFORMATION
  Report Type: 
  Country: None (occurrence: None)
  Receive Date: 20120301
  Receipt Date: 20120216
  Transmission Date: 20120608
  Serious: Yes (Hospitalization)
  Sender: FDA-Public Use
  Company Number: GB-MYLANLABS-2012S1003496

PATIENT
  Age: 52 Year
  Sex: Female
  Weight: 68.5 kg

DRUGS (8)
  1. WARFARIN SODIUM [Suspect]
     Indication: COAGULOPATHY
     Dates: start: 20040101
  2. FERROUS SULFATE TAB [Concomitant]
     Indication: PULMONARY ARTERIAL HYPERTENSION
     Route: 048
     Dates: start: 20070101
  3. WARFARIN SODIUM [Suspect]
     Indication: PULMONARY HYPERTENSION
     Dates: start: 20040101
  4. TRACLEER [Suspect]
     Indication: PULMONARY ARTERIAL HYPERTENSION
     Dates: start: 20090701
  5. SILDENAFIL CITRATE [Suspect]
     Indication: PULMONARY HYPERTENSION
     Route: 048
     Dates: start: 20090701
  6. OMEPRAZOLE [Concomitant]
     Indication: PULMONARY ARTERIAL HYPERTENSION
     Route: 048
     Dates: start: 20070101
  7. DIGOXIN [Concomitant]
     Indication: PULMONARY ARTERIAL HYPERTENSION
     Route: 048
     Dates: start: 20040101
  8. WARFARIN SODIUM [Suspect]
     Indication: ATRIAL SEPTAL DEFECT
     Dates: start: 20040101

REACTIONS (6)
  - COUGH [None]
  - NASAL CONGESTION [None]
  - ERYTHEMA [None]
  - SINUSITIS [None]
  - SINUS HEADACHE [None]
  - EYE PAIN [None]
